FAERS Safety Report 12462056 (Version 3)
Quarter: 2017Q2

REPORT INFORMATION
  Report Type: Spontaneous
  Country: US (occurrence: US)
  Receive Date: 20160613
  Receipt Date: 20170427
  Transmission Date: 20170830
  Serious: Yes (Death, Hospitalization, Other)
  Sender: FDA-Public Use
  Company Number: US-GILEAD-2016-0217912

PATIENT
  Age: 64 Year
  Sex: Male

DRUGS (4)
  1. HARVONI [Suspect]
     Active Substance: LEDIPASVIR\SOFOSBUVIR
     Indication: HEPATIC CIRRHOSIS
  2. HEPARIN [Concomitant]
     Active Substance: HEPARIN SODIUM
  3. ALBUMIN [Concomitant]
     Active Substance: ALBUMIN HUMAN
  4. HARVONI [Suspect]
     Active Substance: LEDIPASVIR\SOFOSBUVIR
     Indication: HEPATITIS C
     Dosage: UNK
     Route: 065
     Dates: start: 20150618, end: 20150910

REACTIONS (5)
  - Shock haemorrhagic [Fatal]
  - Oesophageal varices haemorrhage [Fatal]
  - Hepatic cirrhosis [Fatal]
  - Muscle spasms [Unknown]
  - Blood sodium abnormal [Unknown]

NARRATIVE: CASE EVENT DATE: 20160109
